FAERS Safety Report 7018034-X (Version None)
Quarter: 2010Q3

REPORT INFORMATION
  Report Type: 
  Country: None (occurrence: None)
  Receive Date: 20100928
  Receipt Date: 20100917
  Transmission Date: 20110219
  Serious: Yes (Death, Life-Threatening, Hospitalization, Other)
  Sender: FDA-Public Use
  Company Number: PHHO2010AT08961

PATIENT
  Sex: Male
  Weight: 101.4 kg

DRUGS (17)
  1. BLINDED ALISKIREN ALI+TAB+CF [Suspect]
     Indication: CARDIAC FAILURE
     Dosage: CODE NOT BROKEN
     Route: 048
     Dates: start: 20090610, end: 20091114
  2. ENALAPRIL MALEATE [Suspect]
     Indication: CARDIAC FAILURE
     Dosage: CODE NOT BROKEN
     Route: 048
     Dates: start: 20090610, end: 20091114
  3. BLINDED NO TREATMENT RECEIVED NOMED [Suspect]
     Indication: CARDIAC FAILURE
     Dosage: CODE NOT BROKEN
     Route: 048
     Dates: start: 20090610, end: 20091114
  4. BLINDED ALISKIREN ALI+TAB+CF [Suspect]
     Dosage: NO TREATMENT
     Route: 048
     Dates: start: 20091115, end: 20091127
  5. ENALAPRIL MALEATE [Suspect]
     Dosage: NO TREATMENT
     Route: 048
     Dates: start: 20091115, end: 20091127
  6. BLINDED NO TREATMENT RECEIVED NOMED [Suspect]
     Dosage: NO TREATMENT
     Route: 048
     Dates: start: 20091115, end: 20091127
  7. BLINDED ALISKIREN ALI+TAB+CF [Suspect]
     Dosage: CODE NOT BROKEN
     Route: 048
     Dates: start: 20091128
  8. ENALAPRIL MALEATE [Suspect]
     Dosage: CODE NOT BROKEN
     Route: 048
     Dates: start: 20091128
  9. BLINDED NO TREATMENT RECEIVED NOMED [Suspect]
     Dosage: CODE NOT BROKEN
     Route: 048
     Dates: start: 20091128
  10. BLINDED ALISKIREN ALI+TAB+CF [Suspect]
     Dosage: CODE NOT BROKEN
     Route: 048
     Dates: start: 20100209, end: 20100321
  11. ENALAPRIL MALEATE [Suspect]
     Dosage: CODE NOT BROKEN
     Route: 048
     Dates: start: 20100209, end: 20100321
  12. BLINDED NO TREATMENT RECEIVED NOMED [Suspect]
     Dosage: CODE NOT BROKEN
     Route: 048
     Dates: start: 20100209, end: 20100321
  13. BLINDED ALISKIREN ALI+TAB+CF [Suspect]
     Dosage: CODE NOT BROKEN
     Route: 048
     Dates: start: 20100322, end: 20100609
  14. ENALAPRIL MALEATE [Suspect]
     Dosage: CODE NOT BROKEN
     Route: 048
     Dates: start: 20100322, end: 20100609
  15. BLINDED NO TREATMENT RECEIVED NOMED [Suspect]
     Dosage: CODE NOT BROKEN
     Route: 048
     Dates: start: 20100322, end: 20100609
  16. COMPARATOR ENALAPRIL [Suspect]
     Indication: CARDIAC FAILURE
     Dosage: UNK
     Dates: start: 20090422
  17. ALISKIREN [Suspect]
     Indication: CARDIAC FAILURE
     Dosage: UNK
     Route: 048

REACTIONS (10)
  - DEHYDRATION [None]
  - ENDOCARDITIS [None]
  - HYPERHIDROSIS [None]
  - LEG AMPUTATION [None]
  - PNEUMONIA [None]
  - RENAL FAILURE [None]
  - RENAL IMPAIRMENT [None]
  - SEPSIS [None]
  - SEPTIC SHOCK [None]
  - THROMBOSIS [None]
